FAERS Safety Report 9631463 (Version 1)
Quarter: 2013Q4

REPORT INFORMATION
  Report Type: Spontaneous
  Country: US (occurrence: None)
  Receive Date: 20131017
  Receipt Date: 20131017
  Transmission Date: 20140711
  Serious: Yes (Other)
  Sender: FDA-Public Use
  Company Number: None

PATIENT
  Sex: Female

DRUGS (1)
  1. ACETAMINOPHEN\HYDROCODONE [Suspect]
     Indication: BACK PAIN
     Dosage: 1 TABLET EVERY 4 TO 6 HRS ORAL
     Route: 048
     Dates: start: 20130417

REACTIONS (3)
  - Drug effect decreased [None]
  - Product quality issue [None]
  - Suspected counterfeit product [None]
